FAERS Safety Report 4297380-7 (Version None)
Quarter: 2004Q1

REPORT INFORMATION
  Report Type: 
  Country: None (occurrence: None)
  Receive Date: 20040213
  Receipt Date: 20040203
  Transmission Date: 20041129
  Serious: Yes (Other)
  Sender: FDA-Public Use
  Company Number: HQWYE806703FEB04

PATIENT
  Age: 29 Year
  Sex: Female

DRUGS (1)
  1. EFFEXOR XR [Suspect]
     Dosage: 300 MG 1X PER 1 DAY, ORAL
     Route: 048
     Dates: start: 19990101

REACTIONS (1)
  - DIABETES MELLITUS INADEQUATE CONTROL [None]
